FAERS Safety Report 5550366-4 (Version None)
Quarter: 2007Q4

REPORT INFORMATION
  Report Type: 
  Country: None (occurrence: None)
  Receive Date: 20071210
  Receipt Date: 20071128
  Transmission Date: 20080405
  Serious: Yes (Other)
  Sender: FDA-Public Use
  Company Number: S04-FRA-06408-01

PATIENT
  Age: 80 Year
  Sex: Female
  Weight: 75 kg

DRUGS (5)
  1. MEMANTINE HCL [Suspect]
     Indication: DEMENTIA ALZHEIMER'S TYPE
     Dosage: 20 MG QD PO
     Route: 048
     Dates: start: 20040702
  2. ARICEPT [Concomitant]
  3. ZOLOFT [Concomitant]
  4. PRAVASTATIN [Concomitant]
  5. ZOPICLONE (ZOPICLONE) [Concomitant]

REACTIONS (1)
  - PEMPHIGUS [None]
